FAERS Safety Report 5327753-2 (Version None)
Quarter: 2007Q2

REPORT INFORMATION
  Report Type: 
  Country: None (occurrence: None)
  Receive Date: 20070517
  Receipt Date: 20070418
  Transmission Date: 20071010
  Serious: Yes (Other)
  Sender: FDA-Public Use
  Company Number: ES-ALLERGAN-0704799US

PATIENT
  Sex: Female
  Weight: 70 kg

DRUGS (2)
  1. FML [Suspect]
     Indication: DRUG USE FOR UNKNOWN INDICATION
     Route: 047
     Dates: start: 20070413, end: 20070413
  2. TOBRADEX [Concomitant]
     Indication: DRUG USE FOR UNKNOWN INDICATION
     Route: 047
     Dates: start: 20070401, end: 20070412

REACTIONS (1)
  - CONJUNCTIVAL ULCER [None]
